FAERS Safety Report 8151252-6 (Version None)
Quarter: 2012Q1

REPORT INFORMATION
  Report Type: 
  Country: None (occurrence: None)
  Receive Date: 20120220
  Receipt Date: 20120215
  Transmission Date: 20120608
  Serious: Yes (Death, Hospitalization)
  Sender: FDA-Public Use
  Company Number: US-ABBOTT-12P-163-0905202-00

PATIENT
  Sex: Male

DRUGS (12)
  1. SPIRIVA [Concomitant]
     Indication: PRODUCT USED FOR UNKNOWN INDICATION
     Dates: end: 20120204
  2. UNKNOWN NEBULIZATION MEDICATION [Concomitant]
     Indication: DYSPNOEA
     Dosage: USED WITH A NEBULIZING MACHINE AS NEEDED
     Dates: end: 20120204
  3. IMDUR [Concomitant]
     Indication: PRODUCT USED FOR UNKNOWN INDICATION
     Dates: end: 20120204
  4. HALOPERIDOL [Concomitant]
     Indication: PRODUCT USED FOR UNKNOWN INDICATION
     Dates: end: 20120204
  5. NIASPAN [Suspect]
     Indication: HIGH DENSITY LIPOPROTEIN DECREASED
     Route: 048
     Dates: end: 20120204
  6. HYDRALAZINE HCL [Concomitant]
     Indication: PRODUCT USED FOR UNKNOWN INDICATION
     Dates: end: 20120204
  7. UNKNOWN INHALER [Concomitant]
     Indication: DYSPNOEA
     Dates: end: 20120204
  8. TRILIPIX [Suspect]
     Indication: LOW DENSITY LIPOPROTEIN INCREASED
  9. CARVEDILOL [Concomitant]
     Indication: PRODUCT USED FOR UNKNOWN INDICATION
     Dates: end: 20120204
  10. NIASPAN [Suspect]
     Indication: LOW DENSITY LIPOPROTEIN INCREASED
  11. TRILIPIX [Suspect]
     Indication: HIGH DENSITY LIPOPROTEIN DECREASED
     Route: 048
     Dates: end: 20120204
  12. CITALOPRAM HYDROBROMIDE [Concomitant]
     Indication: PRODUCT USED FOR UNKNOWN INDICATION
     Dates: end: 20120204

REACTIONS (7)
  - RENAL FAILURE CHRONIC [None]
  - DEMENTIA [None]
  - ISCHAEMIC CARDIOMYOPATHY [None]
  - HYPOPHAGIA [None]
  - CORONARY ARTERY OCCLUSION [None]
  - DYSPNOEA [None]
  - MYOCARDIAL INFARCTION [None]
